FAERS Safety Report 21148889 (Version 1)
Quarter: 2022Q3

REPORT INFORMATION
  Report Type: Spontaneous
  Country: US (occurrence: None)
  Receive Date: 20220729
  Receipt Date: 20220729
  Transmission Date: 20221026
  Serious: Yes (Hospitalization)
  Sender: FDA-Public Use
  Company Number: None

PATIENT
  Age: 68 Year
  Sex: Female

DRUGS (14)
  1. AMBRISENTAN [Suspect]
     Active Substance: AMBRISENTAN
     Indication: Pulmonary hypertension
     Dosage: 10MG QD ORAL?
     Route: 048
     Dates: start: 20160421
  2. SILDENAFIL [Concomitant]
  3. NORTRIPTYLINE [Concomitant]
  4. FUROSEMIDE [Concomitant]
  5. AMBUTEROL HFA [Concomitant]
  6. MVI-MINERALS [Concomitant]
  7. LEVOTHYROXINE [Concomitant]
  8. PANTOPRAZOLE [Concomitant]
  9. MYCOPHENOLATE [Concomitant]
  10. OCTREOTIDE [Concomitant]
  11. LIDOCAINE TOP OINT [Concomitant]
  12. HYDROCORTISONE TOP CREAM [Concomitant]
  13. DAZIDOX [Concomitant]
  14. HONEY TOP PASTE [Concomitant]

REACTIONS (2)
  - Melaena [None]
  - Anaemia [None]

NARRATIVE: CASE EVENT DATE: 20220714
